FAERS Safety Report 12248566 (Version 1)
Quarter: 2016Q2

REPORT INFORMATION
  Report Type: Spontaneous
  Country: CZ (occurrence: CZ)
  Receive Date: 20160408
  Receipt Date: 20160408
  Transmission Date: 20160815
  Serious: Yes (Other)
  Sender: FDA-Public Use
  Company Number: CZ-FERRINGPH-2016FE01506

PATIENT

DRUGS (2)
  1. CETROTIDE                          /01453601/ [Concomitant]
     Indication: ENDOMETRIOSIS
     Dosage: 0.25, DAILY
     Route: 058
     Dates: start: 20160113, end: 20160117
  2. MENOPUR [Suspect]
     Active Substance: FOLLICLE STIMULATING HORMONE BETA POLYPEPTIDE\LUTROPIN ALFA
     Indication: INFERTILITY
     Dosage: 150, DAILY
     Route: 058
     Dates: start: 20160109, end: 20160117

REACTIONS (1)
  - Benign hydatidiform mole [Unknown]
